FAERS Safety Report 9431857 (Version 1)
Quarter: 2013Q3

REPORT INFORMATION
  Report Type: Spontaneous
  Country: AR (occurrence: AR)
  Receive Date: 20130731
  Receipt Date: 20130731
  Transmission Date: 20140515
  Serious: Yes (Hospitalization, Other)
  Sender: FDA-Public Use
  Company Number: PHHY2013AR080603

PATIENT
  Sex: Female

DRUGS (1)
  1. DIOVAN [Suspect]
     Indication: HYPERTENSION
     Dosage: 1 DF (80), DAILY
     Route: 048
     Dates: start: 201203, end: 201206

REACTIONS (3)
  - Renal artery occlusion [Recovered/Resolved]
  - Premature labour [Unknown]
  - Exposure during pregnancy [Unknown]
